FAERS Safety Report 9232792 (Version 2)
Quarter: 2013Q3

REPORT INFORMATION
  Report Type: Report from Study
  Country: US (occurrence: US)
  Receive Date: 20130416
  Receipt Date: 20130823
  Transmission Date: 20140515
  Serious: Yes (Other)
  Sender: FDA-Public Use
  Company Number: US-JNJFOC-20130403813

PATIENT
  Sex: Female

DRUGS (11)
  1. REMICADE [Suspect]
     Indication: PAIN
     Route: 042
  2. UNKNOWN MEDICATION [Suspect]
     Indication: IMMUNODEFICIENCY
     Route: 065
  3. NORTRIPTYLINE [Concomitant]
     Indication: MIGRAINE
     Route: 065
     Dates: start: 2010
  4. ZYFLO [Concomitant]
     Indication: ASTHMA
     Route: 065
     Dates: start: 2011
  5. METHOTREXATE [Concomitant]
     Indication: RHEUMATOID ARTHRITIS
     Route: 065
     Dates: start: 2003, end: 2012
  6. LOSARTAN [Concomitant]
     Indication: HYPERTENSION
     Route: 065
     Dates: start: 2008
  7. PRIMIDONE [Concomitant]
     Indication: ESSENTIAL TREMOR
     Route: 065
     Dates: start: 1998
  8. ZETIA [Concomitant]
     Indication: BLOOD CHOLESTEROL
     Route: 065
     Dates: start: 2000
  9. SPIRONOLACTONE [Concomitant]
     Indication: BLOOD PRESSURE
     Route: 065
     Dates: start: 2008
  10. SYMBICORT [Concomitant]
     Route: 065
     Dates: start: 2011
  11. TERAZOSIN [Concomitant]
     Route: 065
     Dates: start: 2009, end: 2012

REACTIONS (4)
  - Cerebrovascular accident [Recovering/Resolving]
  - Clostridium difficile infection [Recovering/Resolving]
  - Immunodeficiency [Recovering/Resolving]
  - Pulmonary embolism [Recovering/Resolving]
